FAERS Safety Report 4980691-7 (Version None)
Quarter: 2006Q2

REPORT INFORMATION
  Report Type: 
  Country: None (occurrence: None)
  Receive Date: 20060424
  Receipt Date: 20050302
  Transmission Date: 20061013
  Serious: Yes (Hospitalization, Disabling, Other)
  Sender: FDA-Public Use
  Company Number: US-MERCK-0503USA00633

PATIENT
  Age: 45 Year
  Sex: Female
  Weight: 61 kg

DRUGS (2)
  1. VIOXX [Suspect]
     Indication: NECK PAIN
     Route: 048
     Dates: start: 19991101, end: 20040830
  2. VIOXX [Suspect]
     Indication: SHOULDER PAIN
     Route: 048
     Dates: start: 19991101, end: 20040830

REACTIONS (5)
  - AMPUTATION [None]
  - ANGIOPATHY [None]
  - LIMB INJURY [None]
  - NECK INJURY [None]
  - THROMBOSIS [None]
